FAERS Safety Report 12337342 (Version 1)
Quarter: 2016Q2

REPORT INFORMATION
  Report Type: Spontaneous
  Country: FR (occurrence: FR)
  Receive Date: 20160505
  Receipt Date: 20160505
  Transmission Date: 20160815
  Serious: Yes (Life-Threatening, Hospitalization, Other)
  Sender: FDA-Public Use
  Company Number: FR-PFIZER INC-2016237630

PATIENT
  Age: 70 Year
  Sex: Male

DRUGS (10)
  1. LANSOPRAZOLE. [Concomitant]
     Active Substance: LANSOPRAZOLE
  2. SKENAN [Concomitant]
     Active Substance: MORPHINE SULFATE
  3. CETIRIZINE DIHYDROCHLORIDE [Concomitant]
     Active Substance: CETIRIZINE HYDROCHLORIDE
  4. KETODERM [Concomitant]
     Active Substance: KETOCONAZOLE
  5. GUTRON [Suspect]
     Active Substance: MIDODRINE
     Indication: HYPOTENSION
     Dosage: 2.5 MG, 3X/DAY
     Route: 048
  6. SERESTA [Concomitant]
     Active Substance: OXAZEPAM
  7. ZOLPIDEM [Concomitant]
     Active Substance: ZOLPIDEM\ZOLPIDEM TARTRATE
  8. DOLIPRANE [Concomitant]
     Active Substance: ACETAMINOPHEN
  9. LYRICA [Suspect]
     Active Substance: PREGABALIN
     Indication: NEUROPATHY PERIPHERAL
     Dosage: 50 MG, 2X/DAY
     Route: 048
  10. XEROQUEL LP [Suspect]
     Active Substance: QUETIAPINE FUMARATE
     Dosage: 50 MG, 2X/DAY
     Route: 048

REACTIONS (4)
  - Lower gastrointestinal haemorrhage [Unknown]
  - Atrioventricular block second degree [Recovered/Resolved]
  - Hypotension [Unknown]
  - Atrioventricular block complete [Unknown]

NARRATIVE: CASE EVENT DATE: 201602
